FAERS Safety Report 24782452 (Version 2)
Quarter: 2025Q1

REPORT INFORMATION
  Report Type: Spontaneous
  Country: US (occurrence: US)
  Receive Date: 20241227
  Receipt Date: 20250324
  Transmission Date: 20250408
  Serious: Yes (Other)
  Sender: BAYER HEALTHCARE PHARMACEUTICALS INC.
  Company Number: US-BAYER-2024A178118

PATIENT
  Age: 26 Year
  Sex: Male

DRUGS (2)
  1. KOVALTRY [Suspect]
     Active Substance: ANTIHEMOPHILIC FACTOR, HUMAN RECOMBINANT
  2. KOVALTRY [Suspect]
     Active Substance: ANTIHEMOPHILIC FACTOR, HUMAN RECOMBINANT

REACTIONS (2)
  - Intentional self-injury [None]
  - Joint injury [None]

NARRATIVE: CASE EVENT DATE: 20241215
